FAERS Safety Report 17674606 (Version 4)
Quarter: 2020Q4

REPORT INFORMATION
  Report Type: Report from Study
  Country: None (occurrence: US)
  Receive Date: 20200416
  Receipt Date: 20201101
  Transmission Date: 20210113
  Serious: Yes (Disabling, Other)
  Sender: FDA-Public Use
  Company Number: US-ABBVIE-20K-163-3360598-00

PATIENT
  Age: 42 Year
  Sex: Male
  Weight: 77.18 kg

DRUGS (1)
  1. HUMIRA [Suspect]
     Active Substance: ADALIMUMAB
     Indication: CROHN^S DISEASE
     Route: 058
     Dates: start: 2016, end: 202004

REACTIONS (8)
  - Optic nerve disorder [Not Recovered/Not Resolved]
  - Arthritis [Unknown]
  - Colour blindness [Not Recovered/Not Resolved]
  - Papilloedema [Recovered/Resolved]
  - Visual impairment [Recovered/Resolved]
  - Blindness unilateral [Recovering/Resolving]
  - Optic nerve injury [Recovered/Resolved]
  - Optic neuritis [Recovered/Resolved]

NARRATIVE: CASE EVENT DATE: 202004
